FAERS Safety Report 4730265-8 (Version None)
Quarter: 2005Q3

REPORT INFORMATION
  Report Type: 
  Country: None (occurrence: None)
  Receive Date: 20050729
  Receipt Date: 20050729
  Transmission Date: 20060218
  Serious: Yes (Hospitalization)
  Sender: FDA-Public Use
  Company Number: None

PATIENT
  Age: 18 Year
  Sex: Male
  Weight: 72 kg

DRUGS (1)
  1. MOBIC [Suspect]
     Indication: HEADACHE
     Dosage: 1 TABLET DAILY ORAL
     Route: 048

REACTIONS (2)
  - MALAISE [None]
  - NAUSEA [None]
